FAERS Safety Report 18969074 (Version 1)
Quarter: 2021Q1

REPORT INFORMATION
  Report Type: Spontaneous
  Country: US (occurrence: US)
  Receive Date: 20210304
  Receipt Date: 20210304
  Transmission Date: 20210420
  Serious: No
  Sender: FDA-Public Use
  Company Number: US-BAYER-2021-085275

PATIENT
  Sex: Female

DRUGS (1)
  1. MIRENA [Suspect]
     Active Substance: LEVONORGESTREL
     Indication: CONTRACEPTION
     Dosage: 20 ?G PER DAY,CONTINUOUSLY
     Route: 015
     Dates: start: 202006, end: 202009

REACTIONS (6)
  - Vaginal haemorrhage [None]
  - Burning sensation [None]
  - Discomfort [None]
  - Alopecia [None]
  - Vaginal discharge [None]
  - Abdominal pain lower [None]
